FAERS Safety Report 18821743 (Version 1)
Quarter: 2021Q1

REPORT INFORMATION
  Report Type: Spontaneous
  Country: US (occurrence: US)
  Receive Date: 20210201
  Receipt Date: 20210201
  Transmission Date: 20210419
  Serious: Yes (Hospitalization)
  Sender: FDA-Public Use
  Company Number: None

PATIENT
  Age: 75 Year
  Sex: Female

DRUGS (12)
  1. NADOLOL. [Concomitant]
     Active Substance: NADOLOL
  2. TOBRAMYCIN 300MG/5ML TOBI GEQ [Suspect]
     Active Substance: TOBRAMYCIN
     Indication: PRODUCT USED FOR UNKNOWN INDICATION
     Dosage: ?          OTHER ROUTE:IRRIGATE SINUSES?
     Dates: start: 20180314
  3. BUDESONIDE. [Concomitant]
     Active Substance: BUDESONIDE
  4. HYDROCHLOROT [Concomitant]
     Active Substance: HYDROCHLOROTHIAZIDE
  5. HYDROCODONE BITARTRATE AND ACETAMINOPHEN [Concomitant]
     Active Substance: ACETAMINOPHEN\HYDROCODONE BITARTRATE
  6. SIMVASTATIN. [Concomitant]
     Active Substance: SIMVASTATIN
  7. AMOXICILLIN. [Concomitant]
     Active Substance: AMOXICILLIN
  8. CEPHALEXIN. [Concomitant]
     Active Substance: CEPHALEXIN
  9. BEVESPI AER [Concomitant]
  10. ALPRAZOLAM. [Concomitant]
     Active Substance: ALPRAZOLAM
  11. POT CL MICRO ER [Concomitant]
  12. DICLOFENAC [Concomitant]
     Active Substance: DICLOFENAC

REACTIONS (2)
  - Asthenia [None]
  - Movement disorder [None]

NARRATIVE: CASE EVENT DATE: 20201214
